FAERS Safety Report 9938576 (Version 1)
Quarter: 2014Q1

REPORT INFORMATION
  Report Type: Spontaneous
  Country: US (occurrence: US)
  Receive Date: 20140303
  Receipt Date: 20140303
  Transmission Date: 20141002
  Serious: Yes (Other)
  Sender: FDA-Public Use
  Company Number: US-JNJFOC-20140212773

PATIENT
  Sex: Male
  Weight: 108.86 kg

DRUGS (14)
  1. DURAGESIC [Suspect]
     Indication: ARTHRALGIA
     Route: 062
  2. DURAGESIC [Suspect]
     Indication: ARTHRALGIA
     Route: 062
  3. DURAGESIC [Suspect]
     Indication: ARTHRALGIA
     Route: 062
  4. DURAGESIC [Suspect]
     Indication: ARTHRALGIA
     Route: 062
  5. DURAGESIC [Suspect]
     Indication: ARTHRALGIA
     Route: 062
  6. DURAGESIC [Suspect]
     Indication: ARTHRALGIA
     Route: 062
  7. XELJANZ [Suspect]
     Indication: RHEUMATOID ARTHRITIS
     Route: 048
     Dates: start: 2013
  8. SIMVASTATIN [Concomitant]
     Indication: BLOOD CHOLESTEROL
     Route: 048
  9. HYDROCHLOROTHIAZIDE [Concomitant]
     Indication: BLOOD PRESSURE
     Route: 048
  10. COZAAR [Concomitant]
     Indication: HYPERTENSION
     Route: 048
  11. MELOXICAM [Concomitant]
     Indication: ANXIETY
     Route: 048
     Dates: start: 2009
  12. CYMBALTA [Concomitant]
     Indication: PRODUCT USED FOR UNKNOWN INDICATION
     Route: 048
  13. LOSARTAN [Concomitant]
     Indication: PRODUCT USED FOR UNKNOWN INDICATION
     Route: 048
  14. CARVEDILOL [Concomitant]
     Indication: ATRIAL FIBRILLATION
     Route: 048
     Dates: start: 2013

REACTIONS (3)
  - Rheumatoid arthritis [Recovered/Resolved]
  - Somnolence [Not Recovered/Not Resolved]
  - Wrong technique in drug usage process [Unknown]
